FAERS Safety Report 8074882-9 (Version None)
Quarter: 2012Q1

REPORT INFORMATION
  Report Type: 
  Country: None (occurrence: None)
  Receive Date: 20120126
  Receipt Date: 20120117
  Transmission Date: 20120608
  Serious: Yes (Hospitalization, Other)
  Sender: FDA-Public Use
  Company Number: US-ASTRAZENECA-2011SE16418

PATIENT
  Age: 75 Year
  Sex: Female

DRUGS (34)
  1. COUMADIN [Concomitant]
  2. SYNTHROID [Concomitant]
     Indication: HYPOTHYROIDISM
  3. REGLAN [Concomitant]
     Indication: DRUG INTERACTION
     Dosage: 1/2 5 MG BEFORE MEALS
  4. ICAPS EYE VITAMINS [Concomitant]
  5. BENADRYL [Concomitant]
     Indication: HYPERSENSITIVITY
     Dosage: 2 AT NIGHT, MORE IF NEEDED
  6. SYMBICORT [Suspect]
     Route: 055
  7. WARFARIN SODIUM [Concomitant]
  8. LORAZEPAM [Concomitant]
     Dosage: HALF AS NEEDED, UP TO 3 IN 24 HRS
  9. REGLAN [Concomitant]
     Indication: ADVERSE DRUG REACTION
     Dosage: 1/2 5 MG BEFORE MEALS
  10. TRAMADOL HCL [Concomitant]
     Indication: BURSITIS
     Dosage: UP TO FOUR DAILY, USUALLY 1 OR 2 AT NIGHT
  11. THERA TEARS EYE DROPS [Concomitant]
  12. JANTOVAN [Concomitant]
  13. LOSARTAN POTASSIUM [Concomitant]
     Indication: CARDIAC DISORDER
  14. PROAIR HFA [Concomitant]
     Dosage: 2 PUFFS EVERY FOUR HOURS, AS NEEDED
  15. NEXIUM [Suspect]
     Dosage: ONE HOUR BEFORE BREAKFAST AND SUPPER
     Route: 048
  16. VASOTEC [Concomitant]
     Indication: HYPERTENSION
  17. VASOTEC [Concomitant]
     Indication: CARDIAC DISORDER
  18. NOVOLOG INSULIN PEN [Concomitant]
     Indication: DIABETES MELLITUS
     Dosage: 70/30, 6 UNITS AM, 5 UNITS PM, ADJUST AS NEEDED.
  19. REGLAN [Concomitant]
     Indication: IMPAIRED GASTRIC EMPTYING
     Dosage: 1/2 5 MG BEFORE MEALS
  20. VITAMIN B COMPLEX CAP [Concomitant]
  21. CRESTOR [Suspect]
     Indication: BLOOD CHOLESTEROL ABNORMAL
     Route: 048
  22. ZEBETA [Concomitant]
     Indication: HYPERTENSION
  23. LORAZEPAM [Concomitant]
     Dosage: HALF AS NEEDED, UP TO 3 IN 24 HRS
  24. ACETAMINOPHEN [Concomitant]
     Indication: ARTHRITIS
     Dosage: 2, UP TO THREE DOSES DAILY
  25. CHILDREN'S CHEWABLE MULTIVITAMINS AND IRON [Concomitant]
  26. LASIX [Concomitant]
  27. BENADRYL [Concomitant]
     Indication: SLEEP DISORDER
     Dosage: 2 AT NIGHT, MORE IF NEEDED
  28. GAS-X [Concomitant]
     Dosage: AFTER EATING AND AS NEEDED
  29. LORAZEPAM [Concomitant]
     Indication: SLEEP DISORDER
  30. VITAMIN D [Concomitant]
     Indication: VITAMIN D DECREASED
     Dosage: 50,000 UNITS TWICE A MONTH
  31. ZEBETA [Concomitant]
     Indication: CARDIAC DISORDER
  32. LOSARTAN POTASSIUM [Concomitant]
     Indication: HYPERTENSION
  33. LORAZEPAM [Concomitant]
     Indication: ANXIETY
  34. SINGULAIR [Concomitant]
     Indication: ASTHMA
     Dosage: 1 IN EVENING

REACTIONS (38)
  - CATARACT [None]
  - SINUS DISORDER [None]
  - DYSLIPIDAEMIA [None]
  - FATIGUE [None]
  - PRURITUS [None]
  - BUNDLE BRANCH BLOCK LEFT [None]
  - BARRETT'S OESOPHAGUS [None]
  - DIABETES MELLITUS [None]
  - GASTROOESOPHAGEAL REFLUX DISEASE [None]
  - HYPERTENSION [None]
  - MALAISE [None]
  - CARDIAC DISORDER [None]
  - ASTHMA [None]
  - RENAL FAILURE CHRONIC [None]
  - NEUROPATHY PERIPHERAL [None]
  - RESPIRATORY TRACT INFECTION [None]
  - IMPAIRED GASTRIC EMPTYING [None]
  - INTESTINAL OBSTRUCTION [None]
  - SINUSITIS [None]
  - ANAEMIA [None]
  - BURSITIS [None]
  - HISTOPLASMOSIS [None]
  - MITRAL VALVE DISEASE [None]
  - DENTAL CARIES [None]
  - WHEEZING [None]
  - CARDIOMYOPATHY [None]
  - CARDIAC FAILURE CONGESTIVE [None]
  - NASOPHARYNGITIS [None]
  - COUGH [None]
  - GRANULOMA [None]
  - HYPOTHYROIDISM [None]
  - OSTEOARTHRITIS [None]
  - PALPITATIONS [None]
  - CHEMICAL INJURY [None]
  - DYSPNOEA [None]
  - FUNGAL INFECTION [None]
  - ENDOTRACHEAL INTUBATION COMPLICATION [None]
  - CORONARY ARTERY DISEASE [None]
